FAERS Safety Report 21390169 (Version 1)
Quarter: 2022Q3

REPORT INFORMATION
  Report Type: Spontaneous
  Country: US (occurrence: US)
  Receive Date: 20220929
  Receipt Date: 20220929
  Transmission Date: 20221026
  Serious: No
  Sender: FDA-Public Use
  Company Number: US-Indivior Limited-INDV-132808-2022

PATIENT
  Age: 54 Year
  Sex: Male

DRUGS (1)
  1. PERSERIS [Suspect]
     Active Substance: RISPERIDONE
     Indication: Schizophrenia
     Dosage: 120 MILLIGRAM, QMO
     Route: 058
     Dates: start: 20211021

REACTIONS (2)
  - Schizophrenia [Recovered/Resolved]
  - Drug effect less than expected [Unknown]

NARRATIVE: CASE EVENT DATE: 20211221
